FAERS Safety Report 4292089-8 (Version None)
Quarter: 2004Q1

REPORT INFORMATION
  Report Type: 
  Country: None (occurrence: None)
  Receive Date: 20040210
  Receipt Date: 20040210
  Transmission Date: 20041129
  Serious: Yes (Other)
  Sender: FDA-Public Use
  Company Number: None

PATIENT
  Age: 44 Year
  Sex: Female

DRUGS (1)
  1. PPD/MANTOUX  AVENTIS PASTEUR [Suspect]
     Dosage: S.Q. LEFT FA
     Route: 058
     Dates: start: 20031113

REACTIONS (2)
  - ERYTHEMA [None]
  - SKIN LESION [None]
